FAERS Safety Report 5250729-0 (Version None)
Quarter: 2007Q1

REPORT INFORMATION
  Report Type: 
  Country: None (occurrence: None)
  Receive Date: 20070228
  Receipt Date: 20060725
  Transmission Date: 20070707
  Serious: No
  Sender: FDA-Public Use
  Company Number: US-GLAXOSMITHKLINE-A0610503A

PATIENT
  Age: 52 Year
  Sex: Female

DRUGS (2)
  1. LAMICTAL [Suspect]
     Indication: BIPOLAR DISORDER
     Dosage: 12.5MG PER DAY
     Route: 048
     Dates: start: 20060626
  2. NO CONCURRENT MEDICATION [Concomitant]

REACTIONS (6)
  - FLATULENCE [None]
  - GLOSSODYNIA [None]
  - HEADACHE [None]
  - INSOMNIA [None]
  - MYOCLONUS [None]
  - NAUSEA [None]
